FAERS Safety Report 8189721-5 (Version None)
Quarter: 2012Q1

REPORT INFORMATION
  Report Type: 
  Country: None (occurrence: None)
  Receive Date: 20120305
  Receipt Date: 20120224
  Transmission Date: 20120608
  Serious: Yes (Death, Hospitalization, Other)
  Sender: FDA-Public Use
  Company Number: AUR-APL-2011-05594

PATIENT
  Age: 71 Year
  Sex: Female

DRUGS (1)
  1. CIPROFLOXACIN [Suspect]
     Indication: URINARY TRACT INFECTION
     Dosage: 500 MG (250 MG, 2 IN 1 D), ORAL
     Route: 048
     Dates: start: 20110927, end: 20111007

REACTIONS (9)
  - INCORRECT PRODUCT STORAGE [None]
  - MULTI-ORGAN FAILURE [None]
  - RENAL FAILURE ACUTE [None]
  - NECROSIS [None]
  - DECUBITUS ULCER [None]
  - APHAGIA [None]
  - HERPES ZOSTER [None]
  - GENERAL PHYSICAL HEALTH DETERIORATION [None]
  - UROSEPSIS [None]
